FAERS Safety Report 21942061 (Version 1)
Quarter: 2023Q1

REPORT INFORMATION
  Report Type: Report from Study
  Country: US (occurrence: US)
  Receive Date: 20230202
  Receipt Date: 20230202
  Transmission Date: 20230418
  Serious: No
  Sender: FDA-Public Use
  Company Number: US-EXELIXIS-CABO-22056599

PATIENT
  Age: 67 Year
  Sex: Male
  Weight: 91.274 kg

DRUGS (1)
  1. CABOMETYX [Suspect]
     Active Substance: CABOZANTINIB S-MALATE
     Indication: Hepatocellular carcinoma
     Dosage: 60 MG, QD
     Route: 048
     Dates: start: 20220915

REACTIONS (15)
  - Feeling abnormal [Unknown]
  - Neuropathy peripheral [Recovering/Resolving]
  - Skin exfoliation [Recovered/Resolved]
  - Influenza [Recovered/Resolved]
  - Skin ulcer [Unknown]
  - Pneumonia [Unknown]
  - Fatigue [Unknown]
  - Stomatitis [Unknown]
  - Hypertension [Recovering/Resolving]
  - Pain in extremity [Recovered/Resolved]
  - Diarrhoea [Recovered/Resolved]
  - Abdominal pain upper [Recovered/Resolved]
  - Dry skin [Recovering/Resolving]
  - Thrombosis [Unknown]
  - Hepatic lesion [Unknown]

NARRATIVE: CASE EVENT DATE: 20221001
